FAERS Safety Report 5609745-9 (Version None)
Quarter: 2008Q1

REPORT INFORMATION
  Report Type: 
  Country: None (occurrence: None)
  Receive Date: 20080131
  Receipt Date: 20080117
  Transmission Date: 20080703
  Serious: Yes (Other)
  Sender: FDA-Public Use
  Company Number: US-PFIZER INC-2008007010

PATIENT
  Sex: Female
  Weight: 61.2 kg

DRUGS (7)
  1. CHANTIX [Suspect]
     Indication: EX-SMOKER
     Dates: start: 20071117, end: 20080116
  2. XANAX [Suspect]
  3. CYANOCOBALAMIN [Concomitant]
  4. LAMICTAL [Concomitant]
  5. XOPENEX [Concomitant]
  6. ALL OTHER THERAPEUTIC PRODUCTS [Concomitant]
  7. ASCORBIC ACID [Concomitant]

REACTIONS (33)
  - ABNORMAL DREAMS [None]
  - ACTIVITIES OF DAILY LIVING IMPAIRED [None]
  - AGGRESSION [None]
  - ANXIETY DISORDER [None]
  - BALANCE DISORDER [None]
  - CHEST PAIN [None]
  - CHILLS [None]
  - DISORIENTATION [None]
  - DISSOCIATION [None]
  - DISTURBANCE IN ATTENTION [None]
  - DIZZINESS [None]
  - DRY EYE [None]
  - EMOTIONAL DISORDER [None]
  - EMPHYSEMA [None]
  - EXAGGERATED STARTLE RESPONSE [None]
  - EYE IRRITATION [None]
  - EYE PAIN [None]
  - FEELING ABNORMAL [None]
  - HALLUCINATION [None]
  - HEART RATE INCREASED [None]
  - HOT FLUSH [None]
  - HYPERTENSION [None]
  - INSOMNIA [None]
  - PANIC ATTACK [None]
  - PSYCHOMOTOR HYPERACTIVITY [None]
  - PSYCHOMOTOR SKILLS IMPAIRED [None]
  - RESPIRATORY DISORDER [None]
  - SENSORY DISTURBANCE [None]
  - THINKING ABNORMAL [None]
  - TINNITUS [None]
  - TREMOR [None]
  - VISION BLURRED [None]
  - VISUAL FIELD DEFECT [None]
